FAERS Safety Report 6564367-0 (Version None)
Quarter: 2010Q1

REPORT INFORMATION
  Report Type: 
  Country: None (occurrence: None)
  Receive Date: 20100201
  Receipt Date: 20100127
  Transmission Date: 20100710
  Serious: Yes (Hospitalization)
  Sender: FDA-Public Use
  Company Number: US-JNJFOC-20070702922

PATIENT
  Sex: Female
  Weight: 74.84 kg

DRUGS (2)
  1. ORTHO EVRA [Suspect]
     Indication: CONTRACEPTION
  2. BIRTH CONTROL PILLS (NOS) [Suspect]
     Indication: DRUG USE FOR UNKNOWN INDICATION
     Route: 048

REACTIONS (10)
  - ABDOMINAL PAIN [None]
  - ARTERIAL THROMBOSIS LIMB [None]
  - CONVULSION [None]
  - DEEP VEIN THROMBOSIS [None]
  - DIZZINESS [None]
  - NAUSEA [None]
  - PHLEBITIS [None]
  - SEPTIC PHLEBITIS [None]
  - VAGINAL HAEMORRHAGE [None]
  - VERTIGO [None]
